FAERS Safety Report 10284848 (Version 2)
Quarter: 2014Q3

REPORT INFORMATION
  Report Type: Spontaneous
  Country: AU (occurrence: AU)
  Receive Date: 20140708
  Receipt Date: 20140708
  Transmission Date: 20150326
  Serious: Yes (Other)
  Sender: FDA-Public Use
  Company Number: AU-BRISTOL-MYERS SQUIBB COMPANY-20622643

PATIENT
  Sex: Male

DRUGS (1)
  1. YERVOY [Suspect]
     Active Substance: IPILIMUMAB
     Indication: METASTATIC MALIGNANT MELANOMA
     Dosage: EXACT DOSE UNKNOWN?START DATE:3WEEKS AGO?3 WEEKLY X 4
     Dates: start: 20140318

REACTIONS (2)
  - Tooth abscess [Recovered/Resolved]
  - Sialoadenitis [Unknown]

NARRATIVE: CASE EVENT DATE: 20140405
